FAERS Safety Report 6673445-7 (Version None)
Quarter: 2010Q1

REPORT INFORMATION
  Report Type: 
  Country: None (occurrence: None)
  Receive Date: 20100329
  Receipt Date: 20090902
  Transmission Date: 20100710
  Serious: Yes (Other)
  Sender: FDA-Public Use
  Company Number: 2009266996

PATIENT
  Age: 42 Year
  Sex: Male
  Weight: 95.2 kg

DRUGS (1)
  1. GEODON [Suspect]
     Indication: BIPOLAR DISORDER
     Dates: start: 20081227, end: 20090120

REACTIONS (1)
  - MANIA [None]
